FAERS Safety Report 21334039 (Version 1)
Quarter: 2022Q3

REPORT INFORMATION
  Report Type: Spontaneous
  Country: CN (occurrence: CN)
  Receive Date: 20220914
  Receipt Date: 20220914
  Transmission Date: 20221027
  Serious: Yes (Hospitalization)
  Sender: FDA-Public Use
  Company Number: CN-ADMA BIOLOGICS INC.-CN-2022ADM000066

PATIENT
  Age: 68 Year
  Sex: Male

DRUGS (2)
  1. HUMAN IMMUNOGLOBULIN G [Suspect]
     Active Substance: HUMAN IMMUNOGLOBULIN G
     Indication: Bickerstaff^s encephalitis
     Dosage: 27.5 GRAM, QD
     Route: 042
  2. ACYCLOVIR ABBOTT VIAL [Concomitant]
     Indication: Bickerstaff^s encephalitis
     Dosage: 750 MILLIGRAM, BID
     Route: 042

REACTIONS (2)
  - Acute kidney injury [Recovered/Resolved]
  - Off label use [Recovered/Resolved]
